FAERS Safety Report 25759344 (Version 2)
Quarter: 2025Q3

REPORT INFORMATION
  Report Type: Spontaneous
  Country: EU (occurrence: EU)
  Receive Date: 20250904
  Receipt Date: 20250919
  Transmission Date: 20251020
  Serious: Yes (Other)
  Sender: ALKEM
  Company Number: None

PATIENT
  Age: 42 Year
  Sex: Female

DRUGS (23)
  1. TACROLIMUS [Suspect]
     Active Substance: TACROLIMUS
     Indication: Immunosuppressant drug therapy
     Dosage: 11 MILLIGRAM, QD
     Route: 065
     Dates: start: 20210415
  2. TACROLIMUS [Suspect]
     Active Substance: TACROLIMUS
     Dosage: 12 MILLIGRAM, QD
     Route: 065
     Dates: start: 20210825
  3. TACROLIMUS [Suspect]
     Active Substance: TACROLIMUS
     Dosage: 12 MILLIGRAM, QD
     Route: 065
     Dates: start: 20210904
  4. TACROLIMUS [Suspect]
     Active Substance: TACROLIMUS
     Dosage: 12 MILLIGRAM, QD
     Route: 065
     Dates: start: 20211022
  5. TACROLIMUS [Suspect]
     Active Substance: TACROLIMUS
     Dosage: 14 MILLIGRAM, QD
     Route: 065
     Dates: start: 20211109
  6. TACROLIMUS [Suspect]
     Active Substance: TACROLIMUS
     Dosage: 9 MILLIGRAM, QD
     Route: 065
     Dates: start: 20220818
  7. TACROLIMUS [Suspect]
     Active Substance: TACROLIMUS
     Dosage: 9 MILLIGRAM, QD
     Route: 065
     Dates: start: 20220913
  8. TACROLIMUS [Suspect]
     Active Substance: TACROLIMUS
     Dosage: 9 MILLIGRAM, QD
     Route: 065
     Dates: start: 20230601
  9. TACROLIMUS [Suspect]
     Active Substance: TACROLIMUS
     Dosage: 7 MILLIGRAM, QD
     Route: 065
     Dates: start: 20231003
  10. TACROLIMUS [Suspect]
     Active Substance: TACROLIMUS
     Dosage: 9 MILLIGRAM, QD
     Route: 065
     Dates: start: 20240103
  11. TACROLIMUS [Suspect]
     Active Substance: TACROLIMUS
     Dosage: 10 MILLIGRAM, QD
     Route: 065
     Dates: start: 20240109
  12. TACROLIMUS [Suspect]
     Active Substance: TACROLIMUS
     Dosage: 11 MILLIGRAM, QD
     Route: 065
     Dates: start: 20240116
  13. TACROLIMUS [Suspect]
     Active Substance: TACROLIMUS
     Dosage: 12 MILLIGRAM, QD
     Route: 065
     Dates: start: 20240123
  14. TACROLIMUS [Suspect]
     Active Substance: TACROLIMUS
     Dosage: 13 MILLIGRAM, QD
     Route: 065
     Dates: start: 20240130
  15. TACROLIMUS [Suspect]
     Active Substance: TACROLIMUS
     Dosage: 11 MILLIGRAM, QD
     Route: 065
     Dates: start: 20240207
  16. TACROLIMUS [Suspect]
     Active Substance: TACROLIMUS
     Dosage: 10 MILLIGRAM, QD
     Route: 065
     Dates: start: 20240330
  17. TACROLIMUS [Suspect]
     Active Substance: TACROLIMUS
     Dosage: 7 MILLIGRAM, QD
     Route: 065
     Dates: start: 20231202
  18. MYCOPHENOLATE MOFETIL [Suspect]
     Active Substance: MYCOPHENOLATE MOFETIL
     Indication: Immunosuppressant drug therapy
     Route: 065
  19. MYCOPHENOLATE MOFETIL [Suspect]
     Active Substance: MYCOPHENOLATE MOFETIL
     Route: 065
  20. MEGLUMINE ANTIMONIATE [Suspect]
     Active Substance: MEGLUMINE ANTIMONIATE
     Indication: Visceral leishmaniasis
     Dosage: 5 MILLIGRAM/KILOGRAM, QD (SBV PLUS/KG/DAY)
     Route: 042
     Dates: start: 20240103, end: 20240118
  21. MEGLUMINE ANTIMONIATE [Suspect]
     Active Substance: MEGLUMINE ANTIMONIATE
     Dosage: UNK, (3-4 MILLIGRAM/KILOGRAM), QD (DOSE REDUCED) (SBV PLUS/KG/DAY) (CUMULATIVE DOSE: 46 899 MG)
     Route: 042
  22. PREDNISOLONE [Suspect]
     Active Substance: PREDNISOLONE
     Indication: Immunosuppressant drug therapy
     Dosage: 5 MILLIGRAM, QD (PREDNISONE EQUIVALENT)
     Route: 065
  23. PREDNISOLONE [Suspect]
     Active Substance: PREDNISOLONE
     Route: 065

REACTIONS (3)
  - Renal tubular disorder [Recovered/Resolved]
  - Arterial disorder [Recovered/Resolved]
  - Visceral leishmaniasis [Recovered/Resolved]

NARRATIVE: CASE EVENT DATE: 20240101
